FAERS Safety Report 5780025-4 (Version None)
Quarter: 2008Q2

REPORT INFORMATION
  Report Type: 
  Country: None (occurrence: None)
  Receive Date: 20080613
  Receipt Date: 20070314
  Transmission Date: 20081010
  Serious: Yes (Hospitalization)
  Sender: FDA-Public Use
  Company Number: Q07-010

PATIENT
  Sex: Male

DRUGS (10)
  1. SAMARIUM SM 153 [Suspect]
     Indication: PROSTATE CANCER METASTATIC
     Dosage: 1.0 MCI/KG
     Dates: start: 20070129
  2. TAXOTERE [Suspect]
     Indication: PROSTATE CANCER METASTATIC
     Dosage: 75 MG/M2 Q3WKS
     Dates: start: 20070307
  3. ADALAT [Concomitant]
  4. PRAVACHOL [Concomitant]
  5. MINIPRESS [Concomitant]
  6. ALTACE [Concomitant]
  7. TRANDATE [Concomitant]
  8. ASPIRIN [Concomitant]
  9. UROXANTRAL [Concomitant]
  10. PREDNISONE TAB [Concomitant]

REACTIONS (2)
  - UNEVALUABLE EVENT [None]
  - WHITE BLOOD CELL COUNT ABNORMAL [None]
